FAERS Safety Report 16662574 (Version 2)
Quarter: 2020Q1

REPORT INFORMATION
  Report Type: Report from Study
  Country: US (occurrence: US)
  Receive Date: 20190802
  Receipt Date: 20200129
  Transmission Date: 20200409
  Serious: No
  Sender: FDA-Public Use
  Company Number: US-EXELIXIS-CABO-19018667

PATIENT
  Age: 80 Year
  Sex: Male
  Weight: 75.74 kg

DRUGS (2)
  1. CABOMETYX [Suspect]
     Active Substance: CABOZANTINIB S-MALATE
     Dosage: 40 MG, QD
  2. CABOMETYX [Suspect]
     Active Substance: CABOZANTINIB S-MALATE
     Indication: RENAL CANCER
     Dosage: 60 MG, QD

REACTIONS (9)
  - Oesophageal pain [Unknown]
  - Angina pectoris [Unknown]
  - Fatigue [Unknown]
  - Weight decreased [Unknown]
  - Pain in jaw [Unknown]
  - Pain in extremity [Unknown]
  - Emotional distress [Unknown]
  - Dyspepsia [Unknown]
  - Blood pressure increased [Recovered/Resolved]

NARRATIVE: CASE EVENT DATE: 20190122
